FAERS Safety Report 4748536-8 (Version None)
Quarter: 2005Q3

REPORT INFORMATION
  Report Type: 
  Country: None (occurrence: None)
  Receive Date: 20050819
  Receipt Date: 20050808
  Transmission Date: 20060218
  Serious: Yes (Disabling)
  Sender: FDA-Public Use
  Company Number: US-BOEHRINGER INGELHEIM PHARMACEUTICALS, INC.-2005-BP-13531BP

PATIENT

DRUGS (1)
  1. FLOMAX [Suspect]
     Route: 048

REACTIONS (3)
  - BLINDNESS UNILATERAL [None]
  - IRIS DISORDER [None]
  - POST PROCEDURAL COMPLICATION [None]
